FAERS Safety Report 13159847 (Version 5)
Quarter: 2017Q2

REPORT INFORMATION
  Report Type: Spontaneous
  Country: JP (occurrence: JP)
  Receive Date: 20170127
  Receipt Date: 20170630
  Transmission Date: 20170830
  Serious: Yes (Death, Hospitalization, Other)
  Sender: FDA-Public Use
  Company Number: PHJP2017JP002985

PATIENT
  Age: 78 Year
  Sex: Female

DRUGS (1)
  1. AFINITOR [Suspect]
     Active Substance: EVEROLIMUS
     Indication: BREAST CANCER
     Dosage: 10 MG, QD
     Route: 048
     Dates: start: 201608, end: 201611

REACTIONS (4)
  - Lung disorder [Fatal]
  - Performance status decreased [Unknown]
  - Acute kidney injury [Fatal]
  - Malaise [Unknown]

NARRATIVE: CASE EVENT DATE: 201611
